FAERS Safety Report 22274065 (Version 1)
Quarter: 2023Q2

REPORT INFORMATION
  Report Type: Report from Study
  Country: CA (occurrence: CA)
  Receive Date: 20230502
  Receipt Date: 20230502
  Transmission Date: 20230721
  Serious: Yes (Other)
  Sender: FDA-Public Use
  Company Number: CA-HLS-202300910

PATIENT
  Age: 42 Year
  Sex: Female

DRUGS (8)
  1. CLOZARIL [Suspect]
     Active Substance: CLOZAPINE
     Indication: Product used for unknown indication
     Dosage: 250 MG BY MOUTH EVERY BEDTIME
     Route: 048
     Dates: start: 20121019
  2. TRAZODONE [Concomitant]
     Active Substance: TRAZODONE HYDROCHLORIDE
     Indication: Product used for unknown indication
     Dosage: 25-50 MG BY MOUTH EVERY BEDTIME WHEN NEEDED
     Route: 048
  3. BUSPIRONE [Concomitant]
     Active Substance: BUSPIRONE HYDROCHLORIDE
     Indication: Product used for unknown indication
     Dosage: 10 MG BY MOUTH THREE TIMES DAILY
     Route: 048
  4. INVEGA SUSTENNA [Concomitant]
     Active Substance: PALIPERIDONE PALMITATE
     Indication: Product used for unknown indication
     Dosage: 200 MG INTRAMUSCULAR EVERY 21 DAYS
     Route: 030
  5. CIPRALEX [Concomitant]
     Active Substance: ESCITALOPRAM OXALATE
     Indication: Product used for unknown indication
     Dosage: 10 MG BY MOUTH EVERY BEDTIME
     Route: 048
  6. IBUPROFEN [Concomitant]
     Active Substance: IBUPROFEN
     Indication: Product used for unknown indication
     Dosage: 400 MG BY MOUTH THREE TIMED DAILY WHEN NEEDED.
     Route: 048
  7. Diane 35 T [Concomitant]
     Indication: Product used for unknown indication
     Dosage: BY MOUTH DAILY
     Route: 048
  8. BACLOFEN [Concomitant]
     Active Substance: BACLOFEN
     Indication: Product used for unknown indication
     Dosage: 10 MG BY MOUTH TWICE DAILY WHEN NEEDED
     Route: 048

REACTIONS (17)
  - Bacterial test positive [Unknown]
  - Blood urea increased [Unknown]
  - Blood urine [Unknown]
  - Chest pain [Unknown]
  - Electrocardiogram T wave inversion [Not Recovered/Not Resolved]
  - Lymphocytosis [Unknown]
  - Mean cell haemoglobin decreased [Unknown]
  - Platelet count increased [Unknown]
  - Ischaemia [Not Recovered/Not Resolved]
  - Red cell distribution width increased [Unknown]
  - Schizoaffective disorder depressive type [Unknown]
  - Drug screen positive [Unknown]
  - Urine leukocyte esterase positive [Unknown]
  - Nitrite urine present [Unknown]
  - Protein urine [Unknown]
  - Red blood cells urine positive [Unknown]
  - White blood cell count increased [Unknown]

NARRATIVE: CASE EVENT DATE: 20200723
